FAERS Safety Report 7415973-2 (Version None)
Quarter: 2011Q2

REPORT INFORMATION
  Report Type: 
  Country: None (occurrence: None)
  Receive Date: 20110414
  Receipt Date: 20100223
  Transmission Date: 20111010
  Serious: Yes (Other)
  Sender: FDA-Public Use
  Company Number: PHHY2010DE12435

PATIENT
  Sex: Female

DRUGS (3)
  1. EXTAVIA [Suspect]
     Indication: MULTIPLE SCLEROSIS
     Dosage: 0.25 ML, UNK
     Route: 058
     Dates: start: 20091221
  2. EXTAVIA [Suspect]
     Dosage: 0.5 ML, UNK
     Route: 058
  3. EXTAVIA [Suspect]
     Dosage: 0.75 ML, UNK
     Route: 058
     Dates: end: 20100415

REACTIONS (8)
  - ATAXIA [None]
  - UHTHOFF'S PHENOMENON [None]
  - MUSCLE SPASTICITY [None]
  - GAIT DISTURBANCE [None]
  - FATIGUE [None]
  - BALANCE DISORDER [None]
  - HYPOKINESIA [None]
  - ABDOMINAL PAIN [None]
